APPROVED DRUG PRODUCT: PREDNISOLONE SODIUM PHOSPHATE
Active Ingredient: PREDNISOLONE SODIUM PHOSPHATE
Strength: EQ 20MG BASE/5ML
Dosage Form/Route: SOLUTION;ORAL
Application: A078988 | Product #001 | TE Code: AA
Applicant: PHARMACEUTICAL ASSOC INC
Approved: Jun 9, 2008 | RLD: No | RS: Yes | Type: RX